FAERS Safety Report 21386497 (Version 1)
Quarter: 2022Q3

REPORT INFORMATION
  Report Type: Spontaneous
  Country: EG (occurrence: EG)
  Receive Date: 20220928
  Receipt Date: 20220928
  Transmission Date: 20221027
  Serious: Yes (Other)
  Sender: FDA-Public Use
  Company Number: EG-NOVOPROD-961055

PATIENT
  Age: 52 Year
  Sex: Female
  Weight: 100 kg

DRUGS (3)
  1. ATORVASTATIN [Concomitant]
     Active Substance: ATORVASTATIN
     Indication: Lipids abnormal
     Dosage: 20 TWICE DAILY AFTER LUNCH (FROM ABOUT 3 YEARS)
     Route: 048
  2. INSULIN HUMAN [Suspect]
     Active Substance: INSULIN HUMAN
     Indication: Diabetes mellitus
     Dosage: 60 IU, QD(40 U MORNING-20 U NIGHT)
  3. CONCOR 5 PLUS [Concomitant]
     Indication: Hypertension
     Dosage: ONE TABLET AT NIGHT( FROM ABOUT 3 YEARS)
     Route: 048

REACTIONS (1)
  - Cardiac disorder [Recovered/Resolved]
